FAERS Safety Report 4297137-7 (Version None)
Quarter: 2004Q1

REPORT INFORMATION
  Report Type: 
  Country: None (occurrence: None)
  Receive Date: 20040213
  Receipt Date: 20040203
  Transmission Date: 20041129
  Serious: Yes (Hospitalization)
  Sender: FDA-Public Use
  Company Number: FI-JNJFOC-20040200657

PATIENT
  Age: 35 Year
  Sex: Male

DRUGS (2)
  1. INFLIXIMAB, RECOMBINANT-BLINDED (INFLIXIMAB RECOMBINANT) LYOPHILIZED P [Suspect]
     Indication: SCIATICA
     Dosage: 3 MG/KG, INTRAVENOUS
     Route: 042
     Dates: start: 20031222, end: 20031222
  2. PLACEBO (PLACEBO) LYOPHILIZED POWDER [Suspect]
     Indication: SCIATICA
     Dosage: 3 MG/KG, INTRAVENOUS
     Route: 042
     Dates: start: 20031222, end: 20031222

REACTIONS (3)
  - CONDITION AGGRAVATED [None]
  - DRUG INEFFECTIVE [None]
  - SCIATICA [None]
